FAERS Safety Report 17519074 (Version 1)
Quarter: 2020Q1

REPORT INFORMATION
  Report Type: Spontaneous
  Country: US (occurrence: US)
  Receive Date: 20200228
  Receipt Date: 20200228
  Transmission Date: 20200409
  Serious: No
  Sender: FDA-Public Use
  Company Number: None

PATIENT
  Age: 36 Year
  Sex: Female

DRUGS (1)
  1. XOLAIR [Suspect]
     Active Substance: OMALIZUMAB

REACTIONS (5)
  - Pruritus [None]
  - Rash [None]
  - Eye swelling [None]
  - Flushing [None]
  - Swelling face [None]

NARRATIVE: CASE EVENT DATE: 20191216
